FAERS Safety Report 10119725 (Version 11)
Quarter: 2021Q1

REPORT INFORMATION
  Report Type: Spontaneous
  Country: US (occurrence: US)
  Receive Date: 20140425
  Receipt Date: 20210112
  Transmission Date: 20210419
  Serious: Yes (Other)
  Sender: FDA-Public Use
  Company Number: US-PFIZER INC-2014114313

PATIENT
  Age: 63 Year
  Sex: Female
  Weight: 67.12 kg

DRUGS (3)
  1. CHANTIX [Suspect]
     Active Substance: VARENICLINE TARTRATE
     Indication: SMOKING CESSATION THERAPY
     Dosage: UNK
     Dates: start: 2014
  2. CHANTIX [Suspect]
     Active Substance: VARENICLINE TARTRATE
     Dosage: 1 MG, 2X/DAY (ON Q OFF ALL YEAR)
     Route: 048
     Dates: start: 2019
  3. CHANTIX [Suspect]
     Active Substance: VARENICLINE TARTRATE
     Dosage: 3 DF, 2X/DAY (3 PILLS TWICE A DAY)

REACTIONS (6)
  - Chronic obstructive pulmonary disease [Unknown]
  - Prescribed overdose [Unknown]
  - Systemic lupus erythematosus [Unknown]
  - Rash [Unknown]
  - Disease recurrence [Unknown]
  - Nausea [Recovered/Resolved]

NARRATIVE: CASE EVENT DATE: 2014
